FAERS Safety Report 4305876-4 (Version None)
Quarter: 2004Q1

REPORT INFORMATION
  Report Type: 
  Country: None (occurrence: None)
  Receive Date: 20040226
  Receipt Date: 20040216
  Transmission Date: 20041129
  Serious: Yes (Other)
  Sender: FDA-Public Use
  Company Number: WAES 0402PRT00002

PATIENT
  Age: 56 Year
  Sex: Female
  Weight: 61 kg

DRUGS (3)
  1. FOSAMAX [Suspect]
     Indication: OSTEOPOROSIS
     Route: 048
     Dates: start: 20031014, end: 20031210
  2. FOSAMAX [Suspect]
     Route: 048
  3. DOMPERIDONE [Concomitant]
     Indication: DYSPEPSIA
     Route: 048

REACTIONS (3)
  - COUGH [None]
  - FACE OEDEMA [None]
  - WHEEZING [None]
